FAERS Safety Report 13632536 (Version 3)
Quarter: 2017Q3

REPORT INFORMATION
  Report Type: Report from Study
  Country: IL (occurrence: IL)
  Receive Date: 20170608
  Receipt Date: 20170714
  Transmission Date: 20171127
  Serious: Yes (Other)
  Sender: FDA-Public Use
  Company Number: IL-IPSEN BIOPHARMACEUTICALS, INC.-2017-05170

PATIENT
  Age: 80 Year
  Sex: Female

DRUGS (13)
  1. SOMATULINE AUTOGEL 120MG [Suspect]
     Active Substance: LANREOTIDE ACETATE
     Indication: OFF LABEL USE
  2. LOSEC [Concomitant]
     Active Substance: OMEPRAZOLE
     Route: 048
  3. LIPITOR [Concomitant]
     Active Substance: ATORVASTATIN CALCIUM
     Route: 048
  4. AFINITOR [Suspect]
     Active Substance: EVEROLIMUS
     Indication: HEPATIC CANCER METASTATIC
     Route: 048
     Dates: start: 201704, end: 2017
  5. CADEX [Concomitant]
     Route: 048
  6. NORVASC [Concomitant]
     Active Substance: AMLODIPINE BESYLATE
     Route: 048
  7. GLUCOPHAGE [Concomitant]
     Active Substance: METFORMIN HYDROCHLORIDE
     Route: 048
  8. XANAX [Concomitant]
     Active Substance: ALPRAZOLAM
     Route: 048
  9. SOMATULINE AUTOGEL 120MG [Suspect]
     Active Substance: LANREOTIDE ACETATE
     Indication: NEUROENDOCRINE TUMOUR OF THE LUNG METASTATIC
     Dosage: 120 MG
     Route: 065
     Dates: start: 201704
  10. SOMATULINE AUTOGEL 120MG [Suspect]
     Active Substance: LANREOTIDE ACETATE
     Indication: HEPATIC CANCER METASTATIC
  11. AFINITOR [Suspect]
     Active Substance: EVEROLIMUS
     Route: 048
     Dates: start: 2017
  12. LORIVAN [Concomitant]
     Route: 048
  13. MICROPIRIN [Concomitant]
     Active Substance: ASPIRIN
     Route: 048

REACTIONS (6)
  - Nausea [Recovering/Resolving]
  - Diarrhoea [Recovering/Resolving]
  - Cough [Recovering/Resolving]
  - Blood glucose increased [Recovering/Resolving]
  - Abdominal pain [Recovering/Resolving]
  - Off label use [Unknown]

NARRATIVE: CASE EVENT DATE: 2017
